FAERS Safety Report 4589274-4 (Version None)
Quarter: 2005Q1

REPORT INFORMATION
  Report Type: 
  Country: None (occurrence: None)
  Receive Date: 20050217
  Receipt Date: 20050217
  Transmission Date: 20050727
  Serious: Yes (Life-Threatening, Hospitalization)
  Sender: FDA-Public Use
  Company Number: None

PATIENT
  Age: 59 Year
  Sex: Female
  Weight: 55.3388 kg

DRUGS (3)
  1. HEPARIN [Suspect]
     Indication: BREAST CANCER METASTATIC
  2. HEPARIN [Suspect]
     Indication: BREAST CANCER STAGE IV
  3. SODIUM FLUSH [Suspect]

REACTIONS (4)
  - BACK PAIN [None]
  - CATHETER RELATED INFECTION [None]
  - PSEUDOMONAL SEPSIS [None]
  - PSEUDOMONAS INFECTION [None]
